FAERS Safety Report 4696455-8 (Version None)
Quarter: 2005Q2

REPORT INFORMATION
  Report Type: 
  Country: None (occurrence: None)
  Receive Date: 20050620
  Receipt Date: 20050607
  Transmission Date: 20051028
  Serious: Yes (Hospitalization, Other)
  Sender: FDA-Public Use
  Company Number: 2005061611

PATIENT
  Age: 82 Year
  Sex: Female
  Weight: 62.5964 kg

DRUGS (5)
  1. ARTHROTEC [Suspect]
     Indication: MONARTHRITIS
     Dosage: 75/200 (1 IN 1 D), ORAL
     Route: 048
     Dates: start: 20000101
  2. NORVASC [Concomitant]
  3. TOPROL (METOPROLOL) [Concomitant]
  4. COZAAR [Concomitant]
  5. SYNTHROID [Concomitant]

REACTIONS (4)
  - FEELING ABNORMAL [None]
  - METASTASES TO LYMPH NODES [None]
  - OESOPHAGEAL OBSTRUCTION [None]
  - TONGUE NEOPLASM MALIGNANT STAGE UNSPECIFIED [None]
